FAERS Safety Report 5380234-2 (Version None)
Quarter: 2007Q3

REPORT INFORMATION
  Report Type: 
  Country: None (occurrence: None)
  Receive Date: 20070706
  Receipt Date: 20070626
  Transmission Date: 20080115
  Serious: No
  Sender: FDA-Public Use
  Company Number: A0651198A

PATIENT
  Age: 66 Year
  Sex: Female

DRUGS (3)
  1. TYKERB [Suspect]
     Indication: BREAST CANCER
     Dosage: 1250MG PER DAY
     Route: 048
     Dates: start: 20070405
  2. XELODA [Suspect]
     Indication: DRUG USE FOR UNKNOWN INDICATION
  3. OTHER MEDICATIONS [Concomitant]

REACTIONS (2)
  - CONSTIPATION [None]
  - RASH [None]
